FAERS Safety Report 4606901-3 (Version None)
Quarter: 2005Q1

REPORT INFORMATION
  Report Type: 
  Country: None (occurrence: None)
  Receive Date: 20050314
  Receipt Date: 20050225
  Transmission Date: 20050727
  Serious: Yes (Other)
  Sender: FDA-Public Use
  Company Number: PHBS2005CL02968

PATIENT
  Age: 50 Year
  Sex: Female

DRUGS (2)
  1. LEPONEX [Suspect]
     Dosage: 100 MG / DAY
     Route: 048
     Dates: start: 20040101
  2. LEPONEX [Suspect]
     Dosage: 125 MG / DAY
     Route: 048
     Dates: start: 20050201

REACTIONS (1)
  - BREAST CANCER FEMALE [None]
